FAERS Safety Report 22106002 (Version 2)
Quarter: 2024Q1

REPORT INFORMATION
  Report Type: Spontaneous
  Country: US (occurrence: US)
  Receive Date: 20230317
  Receipt Date: 20240213
  Transmission Date: 20240410
  Serious: No
  Sender: FDA-Public Use
  Company Number: US-SA-SAC20230313001267

PATIENT
  Sex: Female

DRUGS (25)
  1. DUPIXENT [Suspect]
     Active Substance: DUPILUMAB
     Indication: Asthma
     Dosage: 300 MG, QOW
     Route: 058
  2. PEPCID [Concomitant]
     Active Substance: FAMOTIDINE
  3. PRAVASTATIN [Concomitant]
     Active Substance: PRAVASTATIN
  4. SINGULAIR [Concomitant]
     Active Substance: MONTELUKAST SODIUM
  5. MUCINEX [Concomitant]
     Active Substance: GUAIFENESIN
  6. AMBIEN [Concomitant]
     Active Substance: ZOLPIDEM TARTRATE
  7. ASPIRIN [Concomitant]
     Active Substance: ASPIRIN
  8. ATENOLOL [Concomitant]
     Active Substance: ATENOLOL
  9. BUDESONIDE [Concomitant]
     Active Substance: BUDESONIDE
  10. DALIRESP [Concomitant]
     Active Substance: ROFLUMILAST
  11. FUROSEMIDE [Concomitant]
     Active Substance: FUROSEMIDE
  12. PANTOPRAZOLE [Concomitant]
     Active Substance: PANTOPRAZOLE
  13. POTASSIUM [Concomitant]
     Active Substance: POTASSIUM
  14. PREGABALIN [Concomitant]
     Active Substance: PREGABALIN
  15. SERTRALINE [Concomitant]
     Active Substance: SERTRALINE HYDROCHLORIDE
  16. TIZANIDINE [Concomitant]
     Active Substance: TIZANIDINE
  17. TRELEGY ELLIPTA [Concomitant]
     Active Substance: FLUTICASONE FUROATE\UMECLIDINIUM BROMIDE\VILANTEROL TRIFENATATE
  18. VENTOLIN HFA [Concomitant]
     Active Substance: ALBUTEROL SULFATE
     Dosage: VENTOLIN HFA AER 108
  19. VITAMIN D NOS [Concomitant]
     Active Substance: VITAMIN D NOS
  20. HYDROCODONE [Concomitant]
     Active Substance: HYDROCODONE
  21. KEPPRA [Concomitant]
     Active Substance: LEVETIRACETAM
  22. BENAZEPRIL [Concomitant]
     Active Substance: BENAZEPRIL HYDROCHLORIDE
  23. CENTRUM SILVER [ASCORBIC ACID;CALCIUM;MINERALS NOS;RETINOL;TOCOPHERYL [Concomitant]
  24. NITROGLYCERIN [Concomitant]
     Active Substance: NITROGLYCERIN
  25. AMITRIPTYLINE [Concomitant]
     Active Substance: AMITRIPTYLINE

REACTIONS (14)
  - Respiratory tract infection [Unknown]
  - Hyperphagia [Unknown]
  - Fatigue [Unknown]
  - Disturbance in attention [Unknown]
  - Asthma [Unknown]
  - Dyspnoea [Unknown]
  - Middle insomnia [Unknown]
  - Wheezing [Unknown]
  - Cough [Unknown]
  - Depression [Unknown]
  - Restlessness [Unknown]
  - Sleep disorder [Unknown]
  - Decreased appetite [Unknown]
  - Asthenia [Unknown]
